FAERS Safety Report 7416897-7 (Version None)
Quarter: 2011Q2

REPORT INFORMATION
  Report Type: 
  Country: None (occurrence: None)
  Receive Date: 20110407
  Receipt Date: 20110331
  Transmission Date: 20111010
  Serious: Yes (Other)
  Sender: FDA-Public Use
  Company Number: JHP201100066

PATIENT
  Age: 49 Year
  Sex: Female
  Weight: 78 kg

DRUGS (13)
  1. LEVOCETIRIZINE (LEVOCETIRIZINE) [Concomitant]
  2. PROPOFOL [Concomitant]
  3. ADRENALIN CHLORIDE SOLUTION (EPINEPHRINE) NASAL, 1MG/ML [Suspect]
     Indication: HAEMOSTASIS
     Dosage: 1:1000 DILUTED EPINEPHRINE SWABS IN THE NASAL CONCHA, TOPICAL
     Route: 061
  4. ROCURONIUM BROMIDE [Concomitant]
  5. ATAZANAVIR (ATAZANAVIR) [Concomitant]
  6. SALMETEROL/FLUTICASONPROPIONAAT (FLUTICASONE PROPIONATE, SALMETEROL XI [Concomitant]
  7. THEOPHYLLINE [Concomitant]
  8. DEXAMETHASONE SODIUM PHOSPHATE [Concomitant]
  9. MONTELUKAST SODIUM [Concomitant]
  10. SUFENTANIL (SUFENTANIL) [Concomitant]
  11. TENOFOVIR DISOPROXIL FUMARATE [Concomitant]
  12. AMOXICILLIN W/CLAVULANIC ACID (AMOXICILLIN, CALVULANIC ACID) [Concomitant]
  13. LAMIVUDINE [Concomitant]

REACTIONS (4)
  - TACHYCARDIA [None]
  - ELECTROCARDIOGRAM ST SEGMENT ELEVATION [None]
  - HYPERTENSION [None]
  - ACUTE CORONARY SYNDROME [None]
